FAERS Safety Report 14816585 (Version 1)
Quarter: 2018Q2

REPORT INFORMATION
  Report Type: Spontaneous
  Country: US (occurrence: US)
  Receive Date: 20180426
  Receipt Date: 20180426
  Transmission Date: 20180711
  Serious: Yes (Other)
  Sender: FDA-Public Use
  Company Number: US-TEVA-2018-US-885040

PATIENT
  Sex: Male

DRUGS (1)
  1. CLONAZEPAM. [Suspect]
     Active Substance: CLONAZEPAM
     Indication: BLOOD PRESSURE ABNORMAL
     Dates: start: 20120807

REACTIONS (12)
  - Coagulation test abnormal [Unknown]
  - Hepatic steatosis [Unknown]
  - Intestinal perforation [Unknown]
  - Achlorhydria [Unknown]
  - Amnesia [Unknown]
  - Hypertension [Unknown]
  - Dyspepsia [Unknown]
  - Impaired driving ability [Unknown]
  - Glycosylated haemoglobin [Unknown]
  - Gastrointestinal bacterial overgrowth [Unknown]
  - Abulia [Unknown]
  - Fatigue [Unknown]
